FAERS Safety Report 4733857-5 (Version None)
Quarter: 2005Q3

REPORT INFORMATION
  Report Type: 
  Country: None (occurrence: None)
  Receive Date: 20050803
  Receipt Date: 20050309
  Transmission Date: 20060218
  Serious: Yes (Hospitalization, Disabling)
  Sender: FDA-Public Use
  Company Number: US-MERCK-0503USA01976

PATIENT
  Age: 60 Year
  Sex: Female
  Weight: 86 kg

DRUGS (14)
  1. VIOXX [Suspect]
     Indication: OSTEOARTHRITIS
     Route: 048
     Dates: start: 20030701, end: 20041005
  2. VIOXX [Suspect]
     Indication: EXOSTOSIS
     Route: 048
     Dates: start: 20030701, end: 20041005
  3. CARTIA XT [Concomitant]
     Route: 065
  4. LOTREL [Concomitant]
     Route: 065
     Dates: start: 20010801
  5. COUMADIN [Concomitant]
     Route: 065
     Dates: start: 20010801
  6. FOSAMAX [Concomitant]
     Route: 065
  7. SYNTHROID [Concomitant]
     Route: 065
  8. XANAX [Concomitant]
     Route: 065
  9. LORTAB [Concomitant]
     Route: 065
  10. LEXAPRO [Concomitant]
     Route: 065
  11. ARMOUR THYROID TABLETS [Concomitant]
     Route: 065
  12. ACETAMINOPHEN AND HYDROCODONE BITARTRATE [Concomitant]
     Route: 065
  13. LOVENOX [Concomitant]
     Route: 065
  14. ISOSORBIDE [Concomitant]
     Route: 065

REACTIONS (5)
  - ANXIETY [None]
  - BLOOD TRIGLYCERIDES INCREASED [None]
  - CEREBROVASCULAR ACCIDENT [None]
  - CORONARY ARTERY OCCLUSION [None]
  - OSTEOPOROSIS [None]
